FAERS Safety Report 21297030 (Version 3)
Quarter: 2025Q4

REPORT INFORMATION
  Report Type: Spontaneous
  Country: EU (occurrence: EU)
  Receive Date: 20220906
  Receipt Date: 20251226
  Transmission Date: 20260118
  Serious: Yes (Death)
  Sender: TEVA
  Company Number: None

PATIENT
  Age: 44 Year
  Sex: Female

DRUGS (12)
  1. MICAFUNGIN SODIUM [Suspect]
     Active Substance: MICAFUNGIN SODIUM
     Indication: Product used for unknown indication
     Dosage: MICAFUNGIN SODIUM (8263SO)
     Route: 042
     Dates: start: 20220215
  2. PROGRAF [Suspect]
     Active Substance: TACROLIMUS
     Indication: Lung transplant
     Dosage: 30 CAPSULES
     Route: 048
     Dates: start: 20220215
  3. MEROPENEM [Suspect]
     Active Substance: MEROPENEM
     Indication: Product used for unknown indication
     Dosage: DOSAGE TEXT: MEROPENEM (7155A)
     Route: 042
     Dates: start: 20220329, end: 20220518
  4. CELLCEPT [Suspect]
     Active Substance: MYCOPHENOLATE MOFETIL
     Indication: Lung transplant
     Dosage: CAPSULE: FILM-COATED TABLETS, 50 TABLETS
     Route: 048
     Dates: start: 20220507, end: 20220516
  5. COTRIMOXAZOLE [Suspect]
     Active Substance: SULFAMETHOXAZOLE\TRIMETHOPRIM
     Indication: Lung transplant
     Route: 048
     Dates: start: 20220414, end: 20220516
  6. AMBISOME [Concomitant]
     Active Substance: AMPHOTERICIN B
     Indication: Product used for unknown indication
     Dosage: AMBISOME LIPOSOMAL, 10 VIALS
     Route: 042
     Dates: start: 20220414, end: 20220519
  7. ERITROMICINA LACTOBIONATO [Concomitant]
     Indication: Antibiotic therapy
     Dosage: ERITROMICINA LACTOBIONATO (1419LC)
     Route: 042
     Dates: start: 20220505, end: 20220512
  8. DAPTOMYCIN [Concomitant]
     Active Substance: DAPTOMYCIN
     Indication: Product used for unknown indication
     Dosage: DAPTOMICINA (7068A)
     Route: 042
     Dates: start: 20220303, end: 20220519
  9. FUROSEMIDE [Suspect]
     Active Substance: FUROSEMIDE
     Indication: Product used for unknown indication
     Dosage: FUROSEMIDA (1615A)
     Route: 042
     Dates: start: 20220420, end: 20220530
  10. AMPHOTERICIN B [Concomitant]
     Active Substance: AMPHOTERICIN B
     Indication: Product used for unknown indication
  11. GANCICLOVIR [Suspect]
     Active Substance: GANCICLOVIR
     Indication: Cytomegalovirus infection reactivation
     Dosage: DOSAGE TEXT: GANCICLOVIR (2370A)
     Route: 042
     Dates: start: 20220318, end: 20220518
  12. PANTOPRAZOLE SODIUM [Suspect]
     Active Substance: PANTOPRAZOLE SODIUM
     Indication: Product used for unknown indication
     Dosage: PANTOPRAZOL (7275A)
     Route: 042
     Dates: start: 20220414

REACTIONS (3)
  - Neutropenia [Fatal]
  - Leukopenia [Fatal]
  - Agranulocytosis [Fatal]

NARRATIVE: CASE EVENT DATE: 20220513
